FAERS Safety Report 4930527-5 (Version None)
Quarter: 2006Q1

REPORT INFORMATION
  Report Type: 
  Country: None (occurrence: None)
  Receive Date: 20060302
  Receipt Date: 20060221
  Transmission Date: 20060701
  Serious: Yes (Hospitalization)
  Sender: FDA-Public Use
  Company Number: US-MERCK-0602USA05195

PATIENT
  Age: 81 Year
  Sex: Female
  Weight: 65 kg

DRUGS (33)
  1. PLAVIX [Concomitant]
     Route: 065
     Dates: start: 20030701, end: 20040101
  2. LISINOPRIL [Concomitant]
     Indication: HYPERTENSION
     Route: 065
     Dates: start: 20030701
  3. AMIODARONE [Concomitant]
     Indication: HEART RATE IRREGULAR
     Route: 065
     Dates: start: 20030701
  4. TOPROL-XL [Concomitant]
     Route: 065
     Dates: start: 20030701, end: 20040101
  5. VIOXX [Suspect]
     Indication: OSTEOARTHRITIS
     Route: 048
     Dates: start: 20010101, end: 20040901
  6. AMBIEN [Concomitant]
     Indication: INSOMNIA
     Route: 065
  7. ALBUTEROL [Concomitant]
     Indication: CHRONIC OBSTRUCTIVE PULMONARY DISEASE
     Route: 065
  8. ATROVENT [Concomitant]
     Route: 065
  9. ADVAIR DISKUS 100/50 [Concomitant]
     Indication: CHRONIC OBSTRUCTIVE PULMONARY DISEASE
     Route: 065
  10. TRAZODONE HYDROCHLORIDE [Concomitant]
     Indication: INSOMNIA
     Route: 065
  11. AMOXICILLIN [Concomitant]
     Route: 065
  12. ZANAFLEX [Concomitant]
     Route: 065
  13. POTASSIUM CHLORIDE [Concomitant]
     Route: 065
  14. PRAVACHOL [Concomitant]
     Indication: BLOOD CHOLESTEROL INCREASED
     Route: 065
     Dates: start: 20030101
  15. ISOSORBIDE [Concomitant]
     Route: 065
     Dates: start: 20030701, end: 20040101
  16. CEPHALEXIN [Concomitant]
     Route: 065
  17. CLONAZEPAM [Concomitant]
     Route: 065
  18. HUMIBID [Concomitant]
     Route: 065
  19. NORVASC [Concomitant]
     Route: 065
  20. ASPIRIN [Concomitant]
     Route: 065
     Dates: start: 20030701
  21. BIAXIN [Concomitant]
     Route: 065
  22. ZYRTEC [Concomitant]
     Indication: HYPERSENSITIVITY
     Route: 065
  23. DOXYCYCLINE [Concomitant]
     Route: 065
  24. ZITHROMAX [Concomitant]
     Route: 065
  25. METRONIDAZOLE [Concomitant]
     Route: 065
  26. CLARINEX [Concomitant]
     Route: 065
  27. FLONASE [Concomitant]
     Indication: HYPERSENSITIVITY
     Route: 065
  28. HYDROCHLOROTHIAZIDE [Concomitant]
     Indication: HYPERTENSION
     Route: 065
     Dates: start: 20010101, end: 20020101
  29. HYDROCHLOROTHIAZIDE [Concomitant]
     Indication: OEDEMA PERIPHERAL
     Route: 065
     Dates: start: 20010101, end: 20020101
  30. NAPROXEN [Concomitant]
     Indication: ARTHRITIS
     Route: 065
     Dates: start: 19990101, end: 20010101
  31. IBUPROFEN [Concomitant]
     Indication: ARTHRITIS
     Route: 065
     Dates: start: 20030801, end: 20030801
  32. CELEBREX [Concomitant]
     Indication: ARTHRITIS
     Route: 065
     Dates: start: 20010801, end: 20010801
  33. ACETAMINOPHEN AND HYDROCODONE BITARTRATE [Concomitant]
     Indication: ARTHRITIS
     Route: 065
     Dates: start: 20040901, end: 20041101

REACTIONS (19)
  - ACUTE CORONARY SYNDROME [None]
  - ANAEMIA [None]
  - ASTHMA [None]
  - ATRIAL FIBRILLATION [None]
  - BACK PAIN [None]
  - CHEST PAIN [None]
  - CHRONIC OBSTRUCTIVE PULMONARY DISEASE [None]
  - CORONARY ARTERY DISEASE [None]
  - CORONARY ARTERY STENOSIS [None]
  - DIARRHOEA [None]
  - HYPERLIPIDAEMIA [None]
  - ISCHAEMIC CARDIOMYOPATHY [None]
  - LEFT VENTRICULAR FAILURE [None]
  - MITRAL VALVE INCOMPETENCE [None]
  - MYOCARDIAL INFARCTION [None]
  - PHLEBITIS [None]
  - RASH [None]
  - URTICARIA [None]
  - VENTRICULAR TACHYCARDIA [None]
